FAERS Safety Report 5413704-9 (Version None)
Quarter: 2007Q3

REPORT INFORMATION
  Report Type: 
  Country: None (occurrence: None)
  Receive Date: 20070814
  Receipt Date: 20070809
  Transmission Date: 20080115
  Serious: Yes (Disabling)
  Sender: FDA-Public Use
  Company Number: B0414529A

PATIENT
  Age: 20 Year
  Sex: Female
  Weight: 39 kg

DRUGS (1)
  1. PAXIL [Suspect]
     Indication: PANIC DISORDER
     Route: 048
     Dates: start: 20050801

REACTIONS (4)
  - DIZZINESS [None]
  - PALPITATIONS [None]
  - TREMOR [None]
  - UTERINE LEIOMYOMA [None]
